FAERS Safety Report 7649925-4 (Version None)
Quarter: 2011Q3

REPORT INFORMATION
  Report Type: 
  Country: None (occurrence: None)
  Receive Date: 20110802
  Receipt Date: 20110728
  Transmission Date: 20111222
  Serious: Yes (Other)
  Sender: FDA-Public Use
  Company Number: DK-PFIZER INC-2011174140

PATIENT
  Age: 64 Year
  Sex: Female

DRUGS (3)
  1. SUCRALFATE [Suspect]
     Dosage: 1 G, 1X/DAY
  2. MERCAPTOPURINE [Concomitant]
     Dosage: 25 MG, 1X/DAY
  3. CELECOXIB [Suspect]
     Dosage: 200 MG, 1X/DAY

REACTIONS (2)
  - DIARRHOEA [None]
  - DEHYDRATION [None]
